FAERS Safety Report 10642019 (Version 2)
Quarter: 2014Q4

REPORT INFORMATION
  Report Type: Spontaneous
  Country: US (occurrence: US)
  Receive Date: 20141209
  Receipt Date: 20141209
  Transmission Date: 20150529
  Serious: Yes (Other)
  Sender: FDA-Public Use
  Company Number: US-ASTELLAS-2014US012066

PATIENT
  Sex: Male

DRUGS (1)
  1. XTANDI [Suspect]
     Active Substance: ENZALUTAMIDE
     Indication: NEOPLASM PROSTATE
     Route: 048
     Dates: start: 20140812

REACTIONS (6)
  - Bone pain [Unknown]
  - Fatigue [Unknown]
  - Unevaluable event [Unknown]
  - Arthralgia [Unknown]
  - Drug ineffective [Unknown]
  - Chest discomfort [Unknown]
